FAERS Safety Report 15096363 (Version 2)
Quarter: 2018Q4

REPORT INFORMATION
  Report Type: Spontaneous
  Country: US (occurrence: US)
  Receive Date: 20180702
  Receipt Date: 20181023
  Transmission Date: 20190204
  Serious: Yes (Other)
  Sender: FDA-Public Use
  Company Number: US-PFIZER INC-2018266172

PATIENT
  Age: 69 Year
  Sex: Male

DRUGS (1)
  1. SUTENT [Suspect]
     Active Substance: SUNITINIB MALATE
     Indication: RENAL CANCER
     Dosage: 50 MG, CYCLIC (1QD X 14 DAYS THEN 7 DAYS OFF, 1 CAPSULE BY MOUTH ONCE DAILY FOR 14 DAYS THEN 7 DAYS
     Route: 048
     Dates: start: 20180423, end: 20181015

REACTIONS (2)
  - Myalgia [Unknown]
  - Cardiac failure [Unknown]
